FAERS Safety Report 10376083 (Version 2)
Quarter: 2014Q3

REPORT INFORMATION
  Report Type: Spontaneous
  Country: US (occurrence: US)
  Receive Date: 20140811
  Receipt Date: 20140811
  Transmission Date: 20150326
  Serious: No
  Sender: FDA-Public Use
  Company Number: US-ASTRAZENECA-2003UW00354

PATIENT
  Age: 70 Year
  Sex: Female
  Weight: 81.6 kg

DRUGS (4)
  1. ARIMIDEX [Suspect]
     Active Substance: ANASTROZOLE
     Indication: BREAST CANCER FEMALE
     Dosage: AT NIGHT
     Route: 048
     Dates: start: 200212, end: 200712
  2. FEMARA [Concomitant]
     Active Substance: LETROZOLE
     Indication: METASTASES TO BONE
  3. EXGIVA [Concomitant]
     Indication: BONE DISORDER
  4. ARIMIDEX [Suspect]
     Active Substance: ANASTROZOLE
     Indication: BREAST CANCER FEMALE
     Route: 048
     Dates: start: 20021129

REACTIONS (5)
  - Weight increased [Recovered/Resolved]
  - Asthenia [Unknown]
  - Nausea [Recovered/Resolved]
  - Abdominal pain upper [Recovered/Resolved]
  - Activities of daily living impaired [Unknown]

NARRATIVE: CASE EVENT DATE: 200301
